FAERS Safety Report 5834046-3 (Version None)
Quarter: 2008Q3

REPORT INFORMATION
  Report Type: 
  Country: None (occurrence: None)
  Receive Date: 20080805
  Receipt Date: 20080728
  Transmission Date: 20090109
  Serious: Yes (Hospitalization)
  Sender: FDA-Public Use
  Company Number: US-ELI_LILLY_AND_COMPANY-US200807005720

PATIENT
  Sex: Female

DRUGS (6)
  1. FORTEO [Suspect]
     Dates: start: 20080401, end: 20080101
  2. FORTEO [Suspect]
     Dates: start: 20080101
  3. PRIMIDONE [Concomitant]
  4. PREDNISONE TAB [Concomitant]
     Indication: HYPERSENSITIVITY
     Dosage: 5 MG, UNK
  5. VITAMIN TAB [Concomitant]
  6. KEPPRA [Concomitant]

REACTIONS (6)
  - ANOREXIA [None]
  - ASTHENIA [None]
  - DIVERTICULITIS [None]
  - GASTROINTESTINAL DISORDER [None]
  - GASTROOESOPHAGEAL REFLUX DISEASE [None]
  - WEIGHT DECREASED [None]
